FAERS Safety Report 25278846 (Version 2)
Quarter: 2025Q2

REPORT INFORMATION
  Report Type: Spontaneous
  Country: CO (occurrence: CO)
  Receive Date: 20250507
  Receipt Date: 20250613
  Transmission Date: 20250717
  Serious: No
  Sender: PFIZER
  Company Number: CO-PFIZER INC-202500091122

PATIENT
  Sex: Male

DRUGS (1)
  1. GENOTROPIN [Suspect]
     Active Substance: SOMATROPIN
     Dosage: 1.4 MG, DAILY

REACTIONS (1)
  - Device leakage [Unknown]
